FAERS Safety Report 25741803 (Version 1)
Quarter: 2025Q3

REPORT INFORMATION
  Report Type: Spontaneous
  Country: AU (occurrence: AU)
  Receive Date: 20250829
  Receipt Date: 20250829
  Transmission Date: 20251021
  Serious: Yes (Hospitalization)
  Sender: ELI LILLY AND COMPANY
  Company Number: AU-ELI_LILLY_AND_COMPANY-AU202508023873

PATIENT
  Sex: Male

DRUGS (1)
  1. MOUNJARO [Suspect]
     Active Substance: TIRZEPATIDE
     Indication: Product used for unknown indication
     Route: 065

REACTIONS (1)
  - Pancreatic carcinoma [Not Recovered/Not Resolved]

NARRATIVE: CASE EVENT DATE: 20250501
